FAERS Safety Report 11873769 (Version 1)
Quarter: 2015Q4

REPORT INFORMATION
  Report Type: Spontaneous
  Country: PL (occurrence: PL)
  Receive Date: 20151229
  Receipt Date: 20151229
  Transmission Date: 20160305
  Serious: Yes (Other)
  Sender: FDA-Public Use
  Company Number: PL-TEVA-620226ACC

PATIENT
  Age: 69 Year
  Sex: Female
  Weight: 101 kg

DRUGS (5)
  1. CISPLATINUM [Suspect]
     Active Substance: CISPLATIN
     Route: 042
     Dates: start: 20140626, end: 20140626
  2. CISPLATINUM [Suspect]
     Active Substance: CISPLATIN
     Indication: LUNG CARCINOMA CELL TYPE UNSPECIFIED STAGE 0
     Route: 042
     Dates: start: 20140624, end: 20140624
  3. CISPLATINUM [Suspect]
     Active Substance: CISPLATIN
     Route: 042
     Dates: start: 20140625, end: 20140625
  4. NAVELBINE [Suspect]
     Active Substance: VINORELBINE TARTRATE
     Indication: LUNG CARCINOMA CELL TYPE UNSPECIFIED STAGE 0
     Route: 042
     Dates: start: 20140624, end: 20140624
  5. NAVELBINE [Suspect]
     Active Substance: VINORELBINE TARTRATE
     Route: 042
     Dates: start: 20140701, end: 20140701

REACTIONS (1)
  - Granulocytopenia [Recovering/Resolving]

NARRATIVE: CASE EVENT DATE: 20140715
